FAERS Safety Report 20405178 (Version 3)
Quarter: 2022Q2

REPORT INFORMATION
  Report Type: Spontaneous
  Country: GB (occurrence: GB)
  Receive Date: 20220131
  Receipt Date: 20220510
  Transmission Date: 20220721
  Serious: Yes (Hospitalization)
  Sender: FDA-Public Use
  Company Number: GB-MYLANLABS-2022M1008399

PATIENT
  Sex: Male
  Weight: 65.8 kg

DRUGS (9)
  1. CLOZARIL [Suspect]
     Active Substance: CLOZAPINE
     Indication: Schizophrenia
     Dosage: 200 MILLIGRAM, BID
     Route: 048
     Dates: start: 20091104
  2. CLOZARIL [Suspect]
     Active Substance: CLOZAPINE
     Dosage: BEGAN CLOZAPINE RE-TITRATION
     Dates: start: 20220121
  3. DEPAKOTE [Concomitant]
     Active Substance: DIVALPROEX SODIUM
     Indication: Affective disorder
     Dosage: 750 MILLIGRAM, BID
     Route: 048
     Dates: start: 2008
  4. AMISULPRIDE [Concomitant]
     Active Substance: AMISULPRIDE
     Indication: Ill-defined disorder
     Dosage: 50 MILLIGRAM, BID
     Route: 048
     Dates: start: 201007
  5. SCOPOLAMINE HYDROBROMIDE [Concomitant]
     Active Substance: SCOPOLAMINE HYDROBROMIDE
     Indication: Salivary hypersecretion
     Dosage: 300 MICROGRAM, HS (NOCTE)
     Route: 048
     Dates: start: 2009
  6. METFORMIN [Concomitant]
     Active Substance: METFORMIN HYDROCHLORIDE
     Indication: Hypoglycaemia
     Dosage: 1 GRAM, BID
     Dates: start: 201412
  7. CANAGLIFLOZIN [Concomitant]
     Active Substance: CANAGLIFLOZIN
     Indication: Hypoglycaemia
     Dosage: 100 MILLIGRAM, QD
     Route: 048
     Dates: start: 201611
  8. GLICLAZIDE [Concomitant]
     Active Substance: GLICLAZIDE
     Indication: Hypoglycaemia
     Dosage: 80 MILLIGRAM, BID
     Route: 048
     Dates: start: 201804
  9. ATORVASTATIN [Concomitant]
     Active Substance: ATORVASTATIN
     Indication: Blood cholesterol abnormal
     Dosage: 40 MILLIGRAM, QD
     Route: 048
     Dates: start: 201910

REACTIONS (4)
  - Treatment noncompliance [Recovering/Resolving]
  - Hypoglycaemia [Not Recovered/Not Resolved]
  - Generalised tonic-clonic seizure [Not Recovered/Not Resolved]
  - Product dose omission issue [Unknown]

NARRATIVE: CASE EVENT DATE: 20211101
